FAERS Safety Report 13521664 (Version 1)
Quarter: 2017Q2

REPORT INFORMATION
  Report Type: Spontaneous
  Country: US (occurrence: US)
  Receive Date: 20170508
  Receipt Date: 20170508
  Transmission Date: 20170830
  Serious: Yes (Hospitalization)
  Sender: FDA-Public Use
  Company Number: US-AUROBINDO-AUR-APL-2017-33399

PATIENT
  Age: 39 Year
  Sex: Female

DRUGS (1)
  1. METHYLPREDNISOLONE. [Suspect]
     Active Substance: METHYLPREDNISOLONE
     Indication: MULTIPLE SCLEROSIS
     Route: 042

REACTIONS (7)
  - Vertigo [Recovering/Resolving]
  - Hypoaesthesia [Recovering/Resolving]
  - Deafness [Recovering/Resolving]
  - Rash morbilliform [Recovering/Resolving]
  - Ataxia [Recovering/Resolving]
  - Herpes simplex encephalitis [Recovering/Resolving]
  - Asthenia [Recovering/Resolving]
